FAERS Safety Report 6136280-4 (Version None)
Quarter: 2009Q1

REPORT INFORMATION
  Report Type: 
  Country: None (occurrence: None)
  Receive Date: 20090325
  Receipt Date: 20090312
  Transmission Date: 20090719
  Serious: No
  Sender: FDA-Public Use
  Company Number: 236905J08USA

PATIENT
  Age: 47 Year
  Sex: Female
  Weight: 79 kg

DRUGS (5)
  1. REBIF [Suspect]
     Indication: MULTIPLE SCLEROSIS
     Dosage: 44 MCG, 3 IN 1 WEEKS, SUBCUTANEOUS
     Route: 058
     Dates: start: 20030120
  2. CELLCEPT [Concomitant]
  3. TYLENOL (COTYLENOL) [Concomitant]
  4. UNSPECIFIED MEDICATIONS (ALL OTHER THERAPEUTIC PRODUCTS) [Concomitant]
  5. NOVANTRONE [Concomitant]

REACTIONS (7)
  - BLADDER DISORDER [None]
  - CONDITION AGGRAVATED [None]
  - EYE PAIN [None]
  - HAEMORRHOIDAL HAEMORRHAGE [None]
  - MULTIPLE SCLEROSIS [None]
  - OEDEMA PERIPHERAL [None]
  - VITAMIN D ABNORMAL [None]
